FAERS Safety Report 8394425-X (Version None)
Quarter: 2012Q2

REPORT INFORMATION
  Report Type: 
  Country: None (occurrence: None)
  Receive Date: 20120530
  Receipt Date: 20120523
  Transmission Date: 20120825
  Serious: Yes (Other)
  Sender: FDA-Public Use
  Company Number: PHHY2011US50061

PATIENT
  Sex: Male

DRUGS (2)
  1. GLEEVEC [Suspect]
     Indication: GASTROINTESTINAL STROMAL TUMOUR
     Dosage: 400 MG QD
     Route: 048
  2. GLEEVEC [Suspect]
     Dosage: 600 MG QD
     Route: 048

REACTIONS (3)
  - CONCOMITANT DISEASE PROGRESSION [None]
  - HEPATIC NEOPLASM MALIGNANT RECURRENT [None]
  - ROAD TRAFFIC ACCIDENT [None]
